FAERS Safety Report 20584587 (Version 1)
Quarter: 2022Q1

REPORT INFORMATION
  Report Type: Report from Study
  Country: CA (occurrence: CA)
  Receive Date: 20220311
  Receipt Date: 20220311
  Transmission Date: 20220423
  Serious: Yes (Other)
  Sender: FDA-Public Use
  Company Number: CA-NOVARTISPH-NVSC2021CA228314

PATIENT
  Sex: Male

DRUGS (6)
  1. HYRIMOZ [Suspect]
     Active Substance: ADALIMUMAB-ADAZ
     Indication: Ankylosing spondylitis
     Dosage: 40 MG, QW
     Route: 065
     Dates: start: 20210818
  2. METHOTREXATE [Suspect]
     Active Substance: METHOTREXATE
     Indication: Product used for unknown indication
     Dosage: UNK (WEEKLY 15MG/0.6ML)
     Route: 058
  3. FOLIC ACID [Suspect]
     Active Substance: FOLIC ACID
     Indication: Product used for unknown indication
     Dosage: 5 MG, QW
     Route: 065
  4. AMLODIPINE [Concomitant]
     Active Substance: AMLODIPINE BESYLATE
     Indication: Product used for unknown indication
     Dosage: 5 MG, DIE
     Route: 065
  5. TELMISARTAN [Concomitant]
     Active Substance: TELMISARTAN
     Indication: Product used for unknown indication
     Dosage: 80MG/12.5MG DIE,
     Route: 065
  6. PREDNISONE [Concomitant]
     Active Substance: PREDNISONE
     Indication: Product used for unknown indication
     Dosage: FINISHING IN ONE WEEK
     Route: 065

REACTIONS (4)
  - Crohn^s disease [Unknown]
  - Synovitis [Unknown]
  - Alopecia [Unknown]
  - Drug ineffective [Unknown]

NARRATIVE: CASE EVENT DATE: 20210101
